FAERS Safety Report 7301489-0 (Version None)
Quarter: 2011Q1

REPORT INFORMATION
  Report Type: 
  Country: None (occurrence: None)
  Receive Date: 20110218
  Receipt Date: 20100510
  Transmission Date: 20110831
  Serious: No
  Sender: FDA-Public Use
  Company Number: US-BRISTOL-MYERS SQUIBB COMPANY-15102395

PATIENT
  Age: 31 Year
  Sex: Female
  Weight: 52 kg

DRUGS (3)
  1. HYDROCODONE [Concomitant]
  2. KENALOG-10 [Suspect]
     Indication: MUSCULOSKELETAL PAIN
     Dosage: INJECTED IN HER RIGHT BUTTOCK.
     Dates: start: 20091101
  3. ZANAFLEX [Concomitant]

REACTIONS (2)
  - INJECTION SITE ATROPHY [None]
  - INJECTION SITE PAIN [None]
